FAERS Safety Report 4544835-3 (Version None)
Quarter: 2005Q1

REPORT INFORMATION
  Report Type: 
  Country: None (occurrence: None)
  Receive Date: 20050104
  Receipt Date: 20041228
  Transmission Date: 20050727
  Serious: Yes (Death, Hospitalization)
  Sender: FDA-Public Use
  Company Number: 2003SE05157

PATIENT
  Age: 92 Year
  Sex: Male
  Weight: 38 kg

DRUGS (6)
  1. BLOPRESS [Suspect]
     Indication: HYPERTENSION
     Dosage: 4 MG QD PO
     Route: 048
     Dates: start: 20010110, end: 20030901
  2. AMLODIPINE BESYLATE [Concomitant]
  3. UBIDECARENONE [Concomitant]
  4. MAGNESIUM OXIDE [Concomitant]
  5. TICLOPIDINE HYDROCHLORIDE [Concomitant]
  6. DILTIAZEM HYDROCHLORIDE [Concomitant]

REACTIONS (4)
  - CONDITION AGGRAVATED [None]
  - DISEASE PROGRESSION [None]
  - INTERSTITIAL LUNG DISEASE [None]
  - PULMONARY FIBROSIS [None]
